FAERS Safety Report 16331436 (Version 1)
Quarter: 2019Q2

REPORT INFORMATION
  Report Type: Report from Study
  Country: US (occurrence: US)
  Receive Date: 20190520
  Receipt Date: 20190520
  Transmission Date: 20190711
  Serious: Yes (Death)
  Sender: FDA-Public Use
  Company Number: US-ACADIA PHARMACEUTICALS INC.-ACA-2017-004516

PATIENT
  Age: 81 Year
  Sex: Male

DRUGS (1)
  1. NUPLAZID [Suspect]
     Active Substance: PIMAVANSERIN TARTRATE
     Indication: PARKINSON^S DISEASE
     Dosage: 42.5 MG, QD
     Route: 048
     Dates: start: 20170103, end: 20170624

REACTIONS (2)
  - Parkinson^s disease [Fatal]
  - Product prescribing error [Unknown]

NARRATIVE: CASE EVENT DATE: 20170624
